FAERS Safety Report 6874696-9 (Version None)
Quarter: 2010Q3

REPORT INFORMATION
  Report Type: 
  Country: None (occurrence: None)
  Receive Date: 20100722
  Receipt Date: 20100715
  Transmission Date: 20110219
  Serious: Yes (Hospitalization, Disabling, Other)
  Sender: FDA-Public Use
  Company Number: 2007-155874-NL

PATIENT
  Age: 22 Year
  Sex: Female
  Weight: 73 kg

DRUGS (5)
  1. NUVARING [Suspect]
     Indication: MENSTRUATION IRREGULAR
     Dosage: ; VAG
     Route: 067
     Dates: start: 20061201, end: 20070304
  2. YAZ [Suspect]
     Indication: MENORRHAGIA
     Dosage: ; PO
     Route: 048
     Dates: start: 20061001, end: 20061101
  3. GARDASIL [Concomitant]
  4. ZOCOR [Concomitant]
  5. ATIVAN [Concomitant]

REACTIONS (23)
  - ABDOMINAL PAIN UPPER [None]
  - ALCOHOL USE [None]
  - ANXIETY [None]
  - BRAIN OEDEMA [None]
  - CALCULUS URETERIC [None]
  - CEREBRAL HAEMORRHAGE [None]
  - CEREBRAL INFARCTION [None]
  - CEREBROVASCULAR DISORDER [None]
  - CHOLELITHIASIS [None]
  - DEPRESSION [None]
  - DIABETES MELLITUS [None]
  - EMBOLIC STROKE [None]
  - HEADACHE [None]
  - ISCHAEMIC STROKE [None]
  - MIGRAINE [None]
  - MULTIPLE INJURIES [None]
  - NEPHROLITHIASIS [None]
  - OBSTRUCTIVE UROPATHY [None]
  - OEDEMA PERIPHERAL [None]
  - OVARIAN CYST [None]
  - PAIN IN EXTREMITY [None]
  - SUPERIOR SAGITTAL SINUS THROMBOSIS [None]
  - URINARY TRACT INFECTION [None]
